FAERS Safety Report 21603677 (Version 1)
Quarter: 2022Q4

REPORT INFORMATION
  Report Type: Spontaneous
  Country: US (occurrence: None)
  Receive Date: 20221116
  Receipt Date: 20221116
  Transmission Date: 20230113
  Serious: Yes (unspecified)
  Sender: FDA-Public Use
  Company Number: None

PATIENT
  Age: 31 Year
  Sex: Male
  Weight: 101.7 kg

DRUGS (2)
  1. LINZESS [Suspect]
     Active Substance: LINACLOTIDE
     Indication: Anorectal disorder
     Dates: end: 20221109
  2. LINZESS [Suspect]
     Active Substance: LINACLOTIDE
     Indication: Pelvic floor dysfunction

REACTIONS (14)
  - Malaise [None]
  - Abdominal pain [None]
  - Chest pain [None]
  - Abdominal distension [None]
  - Abdominal distension [None]
  - Feeding disorder [None]
  - Headache [None]
  - Migraine [None]
  - Diarrhoea [None]
  - Abnormal faeces [None]
  - Pain [None]
  - Emotional distress [None]
  - Abdominal pain upper [None]
  - Mental disorder [None]

NARRATIVE: CASE EVENT DATE: 20201110
